FAERS Safety Report 6115182-3 (Version None)
Quarter: 2009Q1

REPORT INFORMATION
  Report Type: 
  Country: None (occurrence: None)
  Receive Date: 20090313
  Receipt Date: 20090313
  Transmission Date: 20090719
  Serious: Yes (Hospitalization)
  Sender: FDA-Public Use
  Company Number: GB-PFIZER INC-2008079548

PATIENT

DRUGS (5)
  1. VORICONAZOLE [Suspect]
     Indication: GASTROINTESTINAL CANDIDIASIS
     Route: 048
     Dates: start: 20040820, end: 20040915
  2. OMEPRAZOLE [Interacting]
     Indication: DYSPEPSIA
     Route: 048
     Dates: start: 20040815
  3. DOMPERIDONE [Concomitant]
     Indication: NAUSEA
  4. ITRACONAZOLE [Concomitant]
  5. AMPHOTERICIN B [Concomitant]

REACTIONS (8)
  - COLLAPSE OF LUNG [None]
  - DRUG INTERACTION [None]
  - DRUG INTOLERANCE [None]
  - DRUG LEVEL INCREASED [None]
  - NEUTROPENIA [None]
  - PERICARDIAL EFFUSION [None]
  - SUPRAVENTRICULAR TACHYCARDIA [None]
  - VENTRICULAR FAILURE [None]
